FAERS Safety Report 4955279-4 (Version None)
Quarter: 2006Q1

REPORT INFORMATION
  Report Type: 
  Country: None (occurrence: None)
  Receive Date: 20060320
  Receipt Date: 20060308
  Transmission Date: 20060701
  Serious: Yes (Life-Threatening, Hospitalization, Other)
  Sender: FDA-Public Use
  Company Number: THYM-10878

PATIENT
  Age: 60 Year
  Sex: Female
  Weight: 54.4 kg

DRUGS (18)
  1. THYMOGLOBULIN [Suspect]
     Indication: RENAL TRANSPLANT
     Dosage: 3 MG/KG QD IV
     Route: 042
     Dates: start: 20060202, end: 20060203
  2. SOLU-MEDROL [Concomitant]
  3. PREDNISONE [Concomitant]
  4. CELLCEPT [Concomitant]
  5. ANCEF [Concomitant]
  6. DULCOLAX [Concomitant]
  7. ZOCOR [Concomitant]
  8. XANAX [Concomitant]
  9. RANITIDINE [Concomitant]
  10. AMBIEN [Concomitant]
  11. BACTRIM [Concomitant]
  12. PEPCID [Concomitant]
  13. SENOKOT [Concomitant]
  14. EFFEXOR [Concomitant]
  15. NIFEDIPINE [Concomitant]
  16. MORPHINE [Concomitant]
  17. ZOFRAN [Concomitant]
  18. TYLENOL (CAPLET) [Concomitant]

REACTIONS (13)
  - BLOOD PRESSURE INCREASED [None]
  - CONVULSION [None]
  - DRUG INEFFECTIVE [None]
  - HYPOTENSION [None]
  - KIDNEY TRANSPLANT REJECTION [None]
  - MYDRIASIS [None]
  - OXYGEN SATURATION DECREASED [None]
  - PUPILLARY REFLEX IMPAIRED [None]
  - PYREXIA [None]
  - RENAL ARTERY THROMBOSIS [None]
  - TACHYCARDIA [None]
  - TREMOR [None]
  - UNRESPONSIVE TO PAIN STIMULI [None]
